FAERS Safety Report 24547779 (Version 1)
Quarter: 2024Q4

REPORT INFORMATION
  Report Type: Spontaneous
  Country: US (occurrence: US)
  Receive Date: 20241025
  Receipt Date: 20241025
  Transmission Date: 20250115
  Serious: Yes (Other)
  Sender: BRISTOL-MYERS SQUIBB COMPANY
  Company Number: US-BRISTOL-MYERS SQUIBB COMPANY-2024-163267

PATIENT
  Age: 64 Year
  Sex: Male

DRUGS (2)
  1. TRIAMCINOLONE ACETONIDE [Suspect]
     Active Substance: TRIAMCINOLONE ACETONIDE
     Indication: Osteoarthritis
     Dosage: INTRAARTICULAR THUMB INJECTION
     Route: 014
     Dates: start: 2016
  2. LIDOCAINE [Suspect]
     Active Substance: LIDOCAINE
     Indication: Osteoarthritis
     Dosage: LEFT THUMB WITH AN INJECTION
     Route: 014
     Dates: start: 2016

REACTIONS (1)
  - Anaphylactic reaction [Recovered/Resolved]
